FAERS Safety Report 21565891 (Version 4)
Quarter: 2022Q4

REPORT INFORMATION
  Report Type: Spontaneous
  Country: AR (occurrence: AR)
  Receive Date: 20221108
  Receipt Date: 20221229
  Transmission Date: 20230113
  Serious: No
  Sender: FDA-Public Use
  Company Number: AR-PFIZER INC-PV202200087803

PATIENT
  Age: 13 Year
  Sex: Male

DRUGS (1)
  1. GENOTROPIN [Suspect]
     Active Substance: SOMATROPIN
     Indication: Growth hormone deficiency
     Dosage: 1 TO 1.4 MG (7 TIMES A WEEK)
     Dates: start: 20120706

REACTIONS (3)
  - Drug dose omission by device [Unknown]
  - Device mechanical issue [Unknown]
  - Device information output issue [Unknown]

NARRATIVE: CASE EVENT DATE: 20221001
